FAERS Safety Report 7444862-2 (Version None)
Quarter: 2011Q2

REPORT INFORMATION
  Report Type: 
  Country: None (occurrence: None)
  Receive Date: 20110429
  Receipt Date: 20110420
  Transmission Date: 20111010
  Serious: Yes (Other)
  Sender: FDA-Public Use
  Company Number: US-BRISTOL-MYERS SQUIBB COMPANY-15689938

PATIENT
  Age: 69 Year
  Sex: Female

DRUGS (6)
  1. ORENCIA [Suspect]
     Dosage: 4 TREATMENTS
  2. CYMBALTA [Concomitant]
  3. PLAQUENIL [Concomitant]
  4. VICODIN [Concomitant]
  5. PREDNISONE [Concomitant]
  6. LOPRESSOR [Concomitant]

REACTIONS (2)
  - MOUTH ULCERATION [None]
  - NEUTROPENIA [None]
